FAERS Safety Report 7985085-8 (Version None)
Quarter: 2011Q4

REPORT INFORMATION
  Report Type: 
  Country: None (occurrence: None)
  Receive Date: 20111216
  Receipt Date: 20111208
  Transmission Date: 20120403
  Serious: Yes (Death, Other)
  Sender: FDA-Public Use
  Company Number: PHFR2011GB04124

PATIENT
  Sex: Male
  Weight: 71 kg

DRUGS (9)
  1. CLOZARIL [Suspect]
     Dosage: 200 MG, BID
     Route: 048
     Dates: start: 20110401
  2. SENNA [Concomitant]
     Dosage: 15 MG, BID
     Route: 048
     Dates: start: 20110615
  3. LORAZEPAM [Concomitant]
     Dosage: 1 MG, PRN
     Route: 048
     Dates: start: 20101101
  4. PARACETAMOL [Concomitant]
     Dosage: 500 MG, TID
     Route: 048
     Dates: start: 20101101
  5. LAXIDO ORANGE [Concomitant]
     Dosage: 1 IN EVERY THREE DAY
     Route: 048
     Dates: start: 20101229
  6. CLOZARIL [Suspect]
     Indication: SCHIZOPHRENIA
     Route: 048
     Dates: start: 20070813
  7. VALPROIC ACID [Concomitant]
     Dosage: 250 MG, BID
     Route: 048
     Dates: start: 20101101
  8. CLOZARIL [Suspect]
     Dosage: 50 MG, BID
     Route: 048
     Dates: start: 20101101
  9. OMEPRAZOLE [Concomitant]
     Dosage: 20 MG, BID
     Route: 048
     Dates: start: 20101101

REACTIONS (10)
  - PNEUMOTHORAX [None]
  - AGITATION [None]
  - LOWER RESPIRATORY TRACT INFECTION [None]
  - HIP FRACTURE [None]
  - ANAEMIA [None]
  - PNEUMONIA [None]
  - TRANSIENT ISCHAEMIC ATTACK [None]
  - ENTEROBIASIS [None]
  - SOMNOLENCE [None]
  - PLATELET COUNT DECREASED [None]
